FAERS Safety Report 9494571 (Version 2)
Quarter: 2013Q3

REPORT INFORMATION
  Report Type: Report from Study
  Country: JP (occurrence: JP)
  Receive Date: 20130903
  Receipt Date: 20130903
  Transmission Date: 20140515
  Serious: Yes (Other)
  Sender: FDA-Public Use
  Company Number: JP-ABBOTT-13X-087-1111384-00

PATIENT
  Age: 76 Year
  Sex: Male

DRUGS (21)
  1. LIPACREON [Suspect]
     Indication: PANCREATIC INSUFFICIENCY
     Route: 048
     Dates: start: 20121031
  2. REBAMIPIDE [Concomitant]
     Indication: GASTROINTESTINAL DISORDER
     Route: 048
  3. REBAMIPIDE [Concomitant]
     Indication: PROPHYLAXIS
  4. OXYCODONE HYDROCHLORIDE [Concomitant]
     Indication: CANCER PAIN
     Route: 048
  5. OXYCODONE HYDROCHLORIDE [Concomitant]
     Indication: CANCER PAIN
     Dates: start: 20130109, end: 20130122
  6. OXYCODONE HYDROCHLORIDE [Concomitant]
     Dates: start: 20130206
  7. MAGNESIUM OXIDE [Concomitant]
     Indication: PRODUCT USED FOR UNKNOWN INDICATION
     Route: 048
  8. GIMERACIL W/OTERACIL POTASSIUM/TEGAFUR [Concomitant]
     Indication: PRODUCT USED FOR UNKNOWN INDICATION
     Route: 048
     Dates: start: 20130123, end: 20130219
  9. GIMERACIL W/OTERACIL POTASSIUM/TEGAFUR [Concomitant]
     Route: 048
     Dates: start: 20130220, end: 20130305
  10. GIMERACIL W/OTERACIL POTASSIUM/TEGAFUR [Concomitant]
     Dates: start: 20130310, end: 20130324
  11. ESOMEPRAZOLE MAGNESIUM [Concomitant]
     Indication: PANCREATIC INSUFFICIENCY
     Route: 048
     Dates: start: 20130213
  12. ALUMINUM HYDROXIDE\MAGNESIUM HYDROXIDE [Concomitant]
     Indication: PANCREATIC INSUFFICIENCY
     Route: 048
     Dates: start: 20130213, end: 20130416
  13. HERBAL EXTRACT NOS [Concomitant]
     Indication: OEDEMA
     Route: 048
     Dates: start: 20130313
  14. AMINO ACIDS [Concomitant]
     Indication: HYPOALBUMINAEMIA
     Route: 048
     Dates: start: 20130313
  15. AMINO ACIDS [Concomitant]
     Indication: HEPATIC CIRRHOSIS
  16. SENNA LEAF [Concomitant]
     Indication: PRODUCT USED FOR UNKNOWN INDICATION
     Route: 048
  17. LOXOPROFEN SODIUM [Concomitant]
     Indication: CANCER PAIN
     Route: 048
  18. LOXOPROFEN SODIUM [Concomitant]
     Indication: CANCER PAIN
     Dates: start: 20130130
  19. GEMCITABINE HYDROCHLORIDE [Concomitant]
     Indication: PRODUCT USED FOR UNKNOWN INDICATION
     Route: 050
     Dates: start: 20130306, end: 20130306
  20. GRANISETRON HYDROCHLORIDE [Concomitant]
     Indication: PRODUCT USED FOR UNKNOWN INDICATION
     Route: 050
     Dates: start: 20130306, end: 20130306
  21. DEXAMETHASONE SODIUM PHOSPHATE [Concomitant]
     Indication: PRODUCT USED FOR UNKNOWN INDICATION
     Route: 050
     Dates: start: 20130306, end: 20130306

REACTIONS (6)
  - Cancer pain [Not Recovered/Not Resolved]
  - Clavicle fracture [Recovered/Resolved]
  - Anaemia [Recovering/Resolving]
  - Oedema peripheral [Recovering/Resolving]
  - Hypoalbuminaemia [Not Recovered/Not Resolved]
  - Fall [Unknown]
